FAERS Safety Report 11404103 (Version 3)
Quarter: 2016Q2

REPORT INFORMATION
  Report Type: Spontaneous
  Country: US (occurrence: US)
  Receive Date: 20150821
  Receipt Date: 20160520
  Transmission Date: 20160815
  Serious: No
  Sender: FDA-Public Use
  Company Number: US-BAYER-2015-400849

PATIENT
  Age: 62 Year
  Sex: Female

DRUGS (3)
  1. CLIMARA [Suspect]
     Active Substance: ESTRADIOL
     Dosage: DAILY DOSE .025 MG
     Route: 062
     Dates: start: 20150625, end: 20150810
  2. LORAZEPAM. [Suspect]
     Active Substance: LORAZEPAM
     Dosage: UNK
     Dates: start: 2015
  3. CLIMARA [Suspect]
     Active Substance: ESTRADIOL
     Dosage: DAILY DOSE .025 MG
     Route: 062

REACTIONS (9)
  - Chromaturia [None]
  - Hallucination [None]
  - Palpitations [None]
  - Breast tenderness [None]
  - Asthenia [None]
  - Palpitations [None]
  - Hot flush [None]
  - Dizziness [None]
  - Headache [None]

NARRATIVE: CASE EVENT DATE: 20150810
